FAERS Safety Report 7102857-2 (Version None)
Quarter: 2010Q4

REPORT INFORMATION
  Report Type: 
  Country: None (occurrence: None)
  Receive Date: 20101115
  Receipt Date: 20101110
  Transmission Date: 20110411
  Serious: Yes (Life-Threatening, Hospitalization)
  Sender: FDA-Public Use
  Company Number: BR-JNJFOC-20101104369

PATIENT
  Age: 38 Year
  Sex: Male

DRUGS (2)
  1. IMOSEC [Suspect]
     Route: 065
  2. IMOSEC [Suspect]
     Indication: DIARRHOEA
     Route: 065

REACTIONS (2)
  - ACUTE MYOCARDIAL INFARCTION [None]
  - COMA [None]
